FAERS Safety Report 8913839 (Version 2)
Quarter: 2013Q1

REPORT INFORMATION
  Report Type: Spontaneous
  Country: IT (occurrence: IT)
  Receive Date: 20121116
  Receipt Date: 20130319
  Transmission Date: 20140127
  Serious: Yes (Death)
  Sender: FDA-Public Use
  Company Number: IT-BIOGENIDEC-2012BI052032

PATIENT
  Age: 74 Year
  Sex: Male

DRUGS (2)
  1. TYSABRI [Suspect]
     Indication: RELAPSING-REMITTING MULTIPLE SCLEROSIS
     Route: 042
     Dates: start: 20120416, end: 20121008
  2. GABAPENTIN [Concomitant]
     Route: 048
     Dates: start: 20121008, end: 20121017

REACTIONS (1)
  - Death [Fatal]
